FAERS Safety Report 9953161 (Version 1)
Quarter: 2014Q1

REPORT INFORMATION
  Report Type: Report from Study
  Country: US (occurrence: US)
  Receive Date: 20140304
  Receipt Date: 20140304
  Transmission Date: 20141002
  Serious: No
  Sender: FDA-Public Use
  Company Number: US-ABBVIE-13P-163-1079049-00

PATIENT
  Age: 55 Year
  Sex: Male

DRUGS (14)
  1. HUMIRA [Suspect]
     Indication: PSORIATIC ARTHROPATHY
     Dosage: STARTING DOSE
     Dates: start: 20130412
  2. OXYCONTIN [Concomitant]
     Indication: PAIN
  3. AMBIEN [Concomitant]
     Indication: INSOMNIA
     Dosage: AT BEDTIME
  4. XANAX [Concomitant]
     Indication: ANXIETY
     Dosage: AS NEEDED
  5. SUDAFED [Concomitant]
     Indication: HYPERSENSITIVITY
  6. LYRICA [Concomitant]
     Indication: NEURALGIA
  7. PREDNISONE [Concomitant]
     Indication: PRODUCT USED FOR UNKNOWN INDICATION
  8. TRIBENZOR [Concomitant]
     Indication: BLOOD PRESSURE
     Dosage: 40/10/25 MG DAILY
  9. CYMBALTA [Concomitant]
     Indication: NEURALGIA
  10. ALLOPURINOL [Concomitant]
     Indication: NEPHROLITHIASIS
  11. VITAMIN D3 [Concomitant]
     Indication: ILL-DEFINED DISORDER
  12. MULTIVITAMIN [Concomitant]
     Indication: PRODUCT USED FOR UNKNOWN INDICATION
     Dosage: DAILY
  13. BENADRYL [Concomitant]
     Indication: PRODUCT USED FOR UNKNOWN INDICATION
     Dosage: AS NEEDED
  14. ASPIRIN [Concomitant]
     Indication: PRODUCT USED FOR UNKNOWN INDICATION

REACTIONS (6)
  - Flushing [Recovering/Resolving]
  - Nausea [Recovering/Resolving]
  - Diarrhoea [Recovered/Resolved]
  - Dyspnoea [Recovered/Resolved]
  - Burning sensation [Recovered/Resolved]
  - Dyspnoea [Unknown]
